FAERS Safety Report 9397109 (Version 2)
Quarter: 2013Q3

REPORT INFORMATION
  Report Type: Spontaneous
  Country: US (occurrence: US)
  Receive Date: 20130712
  Receipt Date: 20130917
  Transmission Date: 20140515
  Serious: Yes (Other)
  Sender: FDA-Public Use
  Company Number: US-PFIZER INC-2013203436

PATIENT
  Age: 42 Year
  Sex: Male

DRUGS (1)
  1. CHANTIX [Suspect]
     Dosage: STARTING MONTH PACK
     Route: 048
     Dates: start: 20100813, end: 20100912

REACTIONS (7)
  - Convulsion [Unknown]
  - Loss of consciousness [Unknown]
  - Fall [Unknown]
  - Head injury [Unknown]
  - Extradural haematoma [Unknown]
  - Dizziness [Unknown]
  - Confusional state [Unknown]
